FAERS Safety Report 9059162 (Version 1)
Quarter: 2013Q1

REPORT INFORMATION
  Report Type: Spontaneous
  Country: US (occurrence: US)
  Receive Date: 20130211
  Receipt Date: 20130211
  Transmission Date: 20140127
  Serious: No
  Sender: FDA-Public Use
  Company Number: US-BRISTOL-MYERS SQUIBB COMPANY-17113051

PATIENT
  Age: 69 Year
  Sex: Male
  Weight: 77.1 kg

DRUGS (3)
  1. METFORMIN HCL [Suspect]
     Dosage: 1DF= 1TAB.DOSE REDUCED TO HALF OF TAB
  2. ASPIRIN [Concomitant]
  3. MICARDIS [Concomitant]
     Indication: BLOOD PRESSURE

REACTIONS (1)
  - Bronchospasm [Unknown]
